FAERS Safety Report 6984406-2 (Version None)
Quarter: 2010Q3

REPORT INFORMATION
  Report Type: 
  Country: None (occurrence: None)
  Receive Date: 20100915
  Receipt Date: 20100907
  Transmission Date: 20110219
  Serious: Yes (Hospitalization)
  Sender: FDA-Public Use
  Company Number: BE-BAYER-201039015GPV

PATIENT
  Age: 77 Year
  Sex: Female
  Weight: 87 kg

DRUGS (1)
  1. CAMPATH [Suspect]
     Indication: CHRONIC LYMPHOCYTIC LEUKAEMIA
     Route: 058
     Dates: start: 20100802, end: 20100901

REACTIONS (1)
  - LIVER FUNCTION TEST ABNORMAL [None]
